FAERS Safety Report 5839289-0 (Version None)
Quarter: 2008Q3

REPORT INFORMATION
  Report Type: 
  Country: None (occurrence: None)
  Receive Date: 20080808
  Receipt Date: 20080730
  Transmission Date: 20090109
  Serious: Yes (Death, Other)
  Sender: FDA-Public Use
  Company Number: US-PFIZER INC-2008064005

PATIENT
  Sex: Male
  Weight: 72.6 kg

DRUGS (6)
  1. XANAX [Suspect]
     Indication: DEPRESSION
  2. ZYVOX [Suspect]
     Indication: INFECTION
  3. CELEXA [Concomitant]
  4. ALL OTHER THERAPEUTIC PRODUCTS [Concomitant]
  5. MUCINEX [Concomitant]
  6. VITAMIN B-12 [Concomitant]

REACTIONS (4)
  - BLOOD POTASSIUM INCREASED [None]
  - CARDIAC FAILURE CONGESTIVE [None]
  - INFECTION [None]
  - RENAL FAILURE [None]
